FAERS Safety Report 21279611 (Version 3)
Quarter: 2022Q4

REPORT INFORMATION
  Report Type: Spontaneous
  Country: US (occurrence: None)
  Receive Date: 20220901
  Receipt Date: 20221004
  Transmission Date: 20230113
  Serious: Yes (Hospitalization, Other)
  Sender: FDA-Public Use
  Company Number: US-ROCHE-3171523

PATIENT
  Sex: Female
  Weight: 45.854 kg

DRUGS (3)
  1. ESBRIET [Suspect]
     Active Substance: PIRFENIDONE
     Indication: Idiopathic pulmonary fibrosis
     Route: 048
  2. ETHAMBUTOL [Concomitant]
     Active Substance: ETHAMBUTOL HYDROCHLORIDE
     Dosage: TAKES TWO 400MG TABLETS PER DOSE
     Route: 048
  3. AZITHROMYCIN [Concomitant]
     Active Substance: AZITHROMYCIN
     Route: 048

REACTIONS (4)
  - Hypophagia [Not Recovered/Not Resolved]
  - Asthenia [Not Recovered/Not Resolved]
  - Pseudomonas infection [Not Recovered/Not Resolved]
  - Gastrooesophageal reflux disease [Unknown]

NARRATIVE: CASE EVENT DATE: 20190101
